FAERS Safety Report 23221404 (Version 2)
Quarter: 2023Q4

REPORT INFORMATION
  Report Type: Spontaneous
  Country: US (occurrence: US)
  Receive Date: 20231123
  Receipt Date: 20231226
  Transmission Date: 20240110
  Serious: No
  Sender: FDA-Public Use
  Company Number: US-BRISTOL-MYERS SQUIBB COMPANY-2023-167911

PATIENT
  Age: 75 Year
  Sex: Male

DRUGS (1)
  1. REVLIMID [Suspect]
     Active Substance: LENALIDOMIDE
     Indication: Plasma cell myeloma
     Route: 048

REACTIONS (9)
  - Diarrhoea [Unknown]
  - Blood phosphorus decreased [Unknown]
  - Lymphocyte count decreased [Unknown]
  - White blood cell count decreased [Unknown]
  - Hypotension [Unknown]
  - Dizziness [Unknown]
  - Asthenia [Unknown]
  - Pain [Unknown]
  - Nausea [Unknown]

NARRATIVE: CASE EVENT DATE: 20231201
